FAERS Safety Report 6259366-2 (Version None)
Quarter: 2009Q3

REPORT INFORMATION
  Report Type: 
  Country: None (occurrence: None)
  Receive Date: 20090706
  Receipt Date: 20090629
  Transmission Date: 20100115
  Serious: Yes (Other)
  Sender: FDA-Public Use
  Company Number: 1000007102

PATIENT
  Age: 73 Year
  Sex: Male

DRUGS (5)
  1. NAMENDA [Suspect]
     Indication: DEMENTIA
     Dosage: SEE IMAGE
     Route: 048
     Dates: start: 20080118, end: 20080124
  2. NAMENDA [Suspect]
     Indication: DEMENTIA
     Dosage: SEE IMAGE
     Route: 048
     Dates: start: 20080125, end: 20080131
  3. NAMENDA [Suspect]
     Indication: DEMENTIA
     Dosage: SEE IMAGE
     Route: 048
     Dates: start: 20080201, end: 20080207
  4. NAMENDA [Suspect]
     Indication: DEMENTIA
     Dosage: 20 MG (10 MG, 2 IN 1 D), ORAL
     Route: 048
     Dates: start: 20080208, end: 20090503
  5. THYROID TAB [Concomitant]

REACTIONS (3)
  - ERYTHEMA [None]
  - RASH [None]
  - RENAL FAILURE CHRONIC [None]
